FAERS Safety Report 5768872-6 (Version None)
Quarter: 2008Q2

REPORT INFORMATION
  Report Type: 
  Country: None (occurrence: None)
  Receive Date: 20080610
  Receipt Date: 20080527
  Transmission Date: 20081010
  Serious: Yes (Other)
  Sender: FDA-Public Use
  Company Number: S08-UKI-01557-01

PATIENT
  Age: 14 Year
  Sex: Male
  Weight: 82 kg

DRUGS (4)
  1. CITALOPRAM HYDROBROMIDE [Suspect]
     Indication: AFFECTIVE DISORDER
     Dosage: 20 MG QD PO
     Route: 048
     Dates: start: 20070625
  2. CITALOPRAM HYDROBROMIDE [Suspect]
     Indication: AFFECTIVE DISORDER
     Dosage: 4 MG QD PO
     Route: 048
     Dates: start: 20061018, end: 20070624
  3. ATOMOXETINE HCL [Concomitant]
  4. TESTOSTERONE [Concomitant]

REACTIONS (2)
  - ELECTROCARDIOGRAM PR PROLONGATION [None]
  - HEART RATE INCREASED [None]
